FAERS Safety Report 17520813 (Version 1)
Quarter: 2020Q1

REPORT INFORMATION
  Report Type: Spontaneous
  Country: US (occurrence: US)
  Receive Date: 20200302
  Receipt Date: 20200302
  Transmission Date: 20200409
  Serious: No
  Sender: FDA-Public Use
  Company Number: None

PATIENT
  Age: 55 Year
  Sex: Male
  Weight: 98 kg

DRUGS (1)
  1. ALIROCUMAB (ALIROCUMAB 75MG/ML INJ, PEN, 1ML) [Suspect]
     Active Substance: ALIROCUMAB
     Indication: HYPERLIPIDAEMIA
     Route: 058
     Dates: start: 20191230, end: 20200214

REACTIONS (3)
  - Myalgia [None]
  - Diarrhoea [None]
  - Cough [None]

NARRATIVE: CASE EVENT DATE: 20200214
